FAERS Safety Report 12824722 (Version 1)
Quarter: 2016Q4

REPORT INFORMATION
  Report Type: Spontaneous
  Country: US (occurrence: US)
  Receive Date: 20161007
  Receipt Date: 20161007
  Transmission Date: 20170207
  Serious: Yes (Hospitalization)
  Sender: FDA-Public Use
  Company Number: US-BAYER-2015-017272

PATIENT
  Age: 62 Year
  Sex: Female
  Weight: 64.4 kg

DRUGS (6)
  1. XARELTO [Suspect]
     Active Substance: RIVAROXABAN
     Indication: CEREBROVASCULAR ACCIDENT PROPHYLAXIS
     Dosage: 20 MG, QD
     Route: 048
     Dates: start: 20121126, end: 20130128
  2. ACETYLSALICYLIC ACID({=100 MG) [Suspect]
     Active Substance: ASPIRIN
     Indication: PRODUCT USED FOR UNKNOWN INDICATION
     Dosage: 81 MG, QD
     Route: 048
  3. XARELTO [Suspect]
     Active Substance: RIVAROXABAN
     Indication: ATRIAL FIBRILLATION
  4. CALTRATE [CALCIUM CARBONATE] [Concomitant]
     Indication: PRODUCT USED FOR UNKNOWN INDICATION
     Dosage: UNK
     Route: 065
  5. LEVOTHYROXINE. [Concomitant]
     Active Substance: LEVOTHYROXINE
     Dosage: UNK
     Route: 065
  6. DRONEDARONE [Concomitant]
     Active Substance: DRONEDARONE
     Indication: HIGH FREQUENCY ABLATION
     Dosage: UNK
     Route: 065

REACTIONS (4)
  - Cerebral haemorrhage [Unknown]
  - Compartment syndrome [Unknown]
  - Eye haemorrhage [Not Recovered/Not Resolved]
  - Blindness unilateral [Unknown]

NARRATIVE: CASE EVENT DATE: 201301
